FAERS Safety Report 9689826 (Version 1)
Quarter: 2013Q4

REPORT INFORMATION
  Report Type: Spontaneous
  Country: US (occurrence: US)
  Receive Date: 20131115
  Receipt Date: 20131115
  Transmission Date: 20140711
  Serious: Yes (Other)
  Sender: FDA-Public Use
  Company Number: US-ASTRAZENECA-2013SE82466

PATIENT
  Sex: 0

DRUGS (2)
  1. BRILINTA [Suspect]
     Indication: ACUTE CORONARY SYNDROME
     Dosage: UNKNOWN
     Route: 048
  2. ANGIOMAX [Concomitant]

REACTIONS (1)
  - Thrombosis [Unknown]
